FAERS Safety Report 4654515-1 (Version None)
Quarter: 2005Q2

REPORT INFORMATION
  Report Type: 
  Country: None (occurrence: None)
  Receive Date: 20050504
  Receipt Date: 20050504
  Transmission Date: 20051028
  Serious: Yes (Other)
  Sender: FDA-Public Use
  Company Number: None

PATIENT
  Sex: Female
  Weight: 38.5557 kg

DRUGS (2)
  1. NIX [Suspect]
     Indication: LICE INFESTATION
     Dosage: 6 TIMES IN 3 WEEKS
     Dates: start: 20050217, end: 20050312
  2. RID [Suspect]

REACTIONS (4)
  - MALAISE [None]
  - NO THERAPEUTIC RESPONSE [None]
  - PYREXIA [None]
  - THERAPEUTIC PRODUCT INEFFECTIVE [None]
